FAERS Safety Report 9161439 (Version 1)
Quarter: 2013Q1

REPORT INFORMATION
  Report Type: Spontaneous
  Country: US (occurrence: US)
  Receive Date: 20130313
  Receipt Date: 20130313
  Transmission Date: 20140127
  Serious: No
  Sender: FDA-Public Use
  Company Number: US-009507513-1303USA006258

PATIENT
  Age: 3 Year
  Sex: Female

DRUGS (2)
  1. CLARITIN ORAL SOLUTION [Suspect]
     Indication: NASOPHARYNGITIS
     Dosage: 5 MG, ONCE
     Route: 048
     Dates: start: 20130226
  2. CLARITIN ORAL SOLUTION [Suspect]
     Dosage: 15 MG, ONCE
     Route: 048
     Dates: start: 20130226

REACTIONS (4)
  - Overdose [Recovering/Resolving]
  - Accidental exposure to product by child [Unknown]
  - No adverse event [Unknown]
  - Off label use [Unknown]
